FAERS Safety Report 8577607-3 (Version None)
Quarter: 2012Q3

REPORT INFORMATION
  Report Type: 
  Country: None (occurrence: None)
  Receive Date: 20120807
  Receipt Date: 20120731
  Transmission Date: 20120928
  Serious: Yes (Hospitalization)
  Sender: FDA-Public Use
  Company Number: US-CELGENEUS-163-20785-12071953

PATIENT
  Age: 74 Year
  Sex: Female
  Weight: 126.5 kg

DRUGS (7)
  1. MELPHALAN HYDROCHLORIDE [Suspect]
     Dosage: 9 MILLIGRAM/SQ. METER
     Route: 048
     Dates: start: 20100223, end: 20100226
  2. THALOMID [Suspect]
     Dosage: 100 MILLIGRAM
     Route: 048
     Dates: start: 20100223, end: 20100226
  3. MELPHALAN HYDROCHLORIDE [Suspect]
     Dosage: 9 MILLIGRAM/SQ. METER
     Route: 048
     Dates: start: 20091118
  4. PREDNISONE [Suspect]
     Dosage: 100 MILLIGRAM
     Route: 048
     Dates: start: 20091118
  5. PREDNISONE [Suspect]
     Dosage: 100 MILLIGRAM
     Route: 048
     Dates: start: 20100223, end: 20100226
  6. ASPIRIN [Concomitant]
     Dosage: 325 MILLIGRAM
     Route: 048
     Dates: start: 20091118
  7. THALOMID [Suspect]
     Dosage: 100 MILLIGRAM
     Route: 048
     Dates: start: 20091118

REACTIONS (1)
  - RECTAL CANCER [None]
